FAERS Safety Report 24683556 (Version 1)
Quarter: 2024Q4

REPORT INFORMATION
  Report Type: Spontaneous
  Country: CN (occurrence: CN)
  Receive Date: 20241201
  Receipt Date: 20241201
  Transmission Date: 20250114
  Serious: Yes (Hospitalization, Other)
  Sender: INSUD PHARMA
  Company Number: CN-INSUD PHARMA-2411CN09023

PATIENT

DRUGS (3)
  1. OMEPRAZOLE [Suspect]
     Active Substance: OMEPRAZOLE
     Indication: Chronic gastritis
     Dosage: 40 MILLIGRAM, QD
     Route: 065
  2. SILIBININ [Concomitant]
     Active Substance: SILIBININ
  3. URSODIOL [Concomitant]
     Active Substance: URSODIOL

REACTIONS (8)
  - Insulin autoimmune syndrome [Recovering/Resolving]
  - Fatigue [Recovering/Resolving]
  - Dizziness [Recovering/Resolving]
  - Palpitations [Recovering/Resolving]
  - Hyperhidrosis [Recovering/Resolving]
  - Tremor [Recovering/Resolving]
  - Postprandial hypoglycaemia [Recovering/Resolving]
  - Hypoglycaemia [Recovering/Resolving]
